FAERS Safety Report 4850582-0 (Version None)
Quarter: 2005Q4

REPORT INFORMATION
  Report Type: 
  Country: None (occurrence: None)
  Receive Date: 20051208
  Receipt Date: 20051208
  Transmission Date: 20060501
  Serious: Yes (Hospitalization)
  Sender: FDA-Public Use
  Company Number: None

PATIENT
  Sex: Female
  Weight: 74.8435 kg

DRUGS (3)
  1. PAXIL [Suspect]
     Indication: DEPRESSION
     Dates: start: 20040601, end: 20041123
  2. PAXIL [Suspect]
     Indication: POST-TRAUMATIC STRESS DISORDER
     Dates: start: 20040601, end: 20041123
  3. WELLBUTRIN [Suspect]

REACTIONS (5)
  - BIPOLAR DISORDER [None]
  - DEPRESSION [None]
  - IMPAIRED WORK ABILITY [None]
  - INTENTIONAL OVERDOSE [None]
  - POST-TRAUMATIC STRESS DISORDER [None]
